FAERS Safety Report 23455363 (Version 1)
Quarter: 2024Q1

REPORT INFORMATION
  Report Type: Spontaneous
  Country: US (occurrence: US)
  Receive Date: 20240130
  Receipt Date: 20240130
  Transmission Date: 20240410
  Serious: Yes (Hospitalization)
  Sender: FDA-Public Use
  Company Number: US-Amarin Pharma  Inc-2024AMR000036

PATIENT
  Sex: Male

DRUGS (2)
  1. VASCEPA [Suspect]
     Active Substance: ICOSAPENT ETHYL
     Indication: Blood triglycerides increased
     Route: 065
  2. VASCEPA [Suspect]
     Active Substance: ICOSAPENT ETHYL
     Route: 065
     Dates: start: 202310

REACTIONS (7)
  - Vascular graft [Unknown]
  - Stent placement [Unknown]
  - Therapeutic procedure [Unknown]
  - Blood triglycerides increased [Unknown]
  - Eructation [Unknown]
  - Therapy interrupted [Unknown]
  - Product taste abnormal [Unknown]
